FAERS Safety Report 23126642 (Version 1)
Quarter: 2023Q4

REPORT INFORMATION
  Report Type: Spontaneous
  Country: CN (occurrence: CN)
  Receive Date: 20231030
  Receipt Date: 20231030
  Transmission Date: 20240109
  Serious: Yes (Hospitalization)
  Sender: FDA-Public Use
  Company Number: CN-BAYER-2023A150090

PATIENT
  Age: 69 Year
  Sex: Male
  Weight: 65 kg

DRUGS (1)
  1. NUBEQA [Suspect]
     Active Substance: DAROLUTAMIDE
     Indication: Prostate cancer stage 0
     Dosage: 0.6 G, QD
     Route: 048
     Dates: start: 20230615, end: 20230702

REACTIONS (6)
  - Hypersensitivity [Recovering/Resolving]
  - Drug eruption [Recovered/Resolved]
  - Pyrexia [Recovering/Resolving]
  - Hypoaesthesia [None]
  - Vomiting [None]
  - Off label use [None]

NARRATIVE: CASE EVENT DATE: 20230615
